FAERS Safety Report 9278218 (Version 1)
Quarter: 2013Q2

REPORT INFORMATION
  Report Type: Spontaneous
  Country: FR (occurrence: FR)
  Receive Date: 20130508
  Receipt Date: 20130508
  Transmission Date: 20140414
  Serious: Yes (Disabling)
  Sender: FDA-Public Use
  Company Number: FR-PFIZER INC-2013133954

PATIENT
  Age: 38 Year
  Sex: Female

DRUGS (4)
  1. TRINORDIOL [Suspect]
     Dosage: UNK
     Route: 048
     Dates: start: 1974, end: 1980
  2. STEDIRIL [Suspect]
     Dosage: UNK
     Route: 048
     Dates: start: 1980, end: 1985
  3. ADEPAL [Suspect]
     Dosage: UNK
     Route: 048
     Dates: start: 1985, end: 1990
  4. DIANE-35 [Suspect]
     Dosage: UNK
     Route: 048
     Dates: start: 1990, end: 19950515

REACTIONS (4)
  - Cerebral haemorrhage [Recovered/Resolved with Sequelae]
  - Ruptured cerebral aneurysm [Recovered/Resolved with Sequelae]
  - Coma [None]
  - Hemiplegia [None]
